FAERS Safety Report 7414254-0 (Version None)
Quarter: 2011Q2

REPORT INFORMATION
  Report Type: 
  Country: None (occurrence: None)
  Receive Date: 20110411
  Receipt Date: 20110411
  Transmission Date: 20111010
  Serious: No
  Sender: FDA-Public Use
  Company Number: None

PATIENT
  Age: 55 Year
  Sex: Male

DRUGS (3)
  1. DANTROLENE [Suspect]
     Dates: start: 20090713, end: 20090713
  2. BACLOFEN [Suspect]
     Dates: start: 20090724, end: 20090801
  3. BACLOFEN [Suspect]
     Dates: start: 20090713, end: 20090716

REACTIONS (9)
  - RENAL CYST [None]
  - ASPARTATE AMINOTRANSFERASE INCREASED [None]
  - ENCEPHALOPATHY [None]
  - GYNAECOMASTIA [None]
  - URINE COPPER INCREASED [None]
  - HERNIA [None]
  - ALANINE AMINOTRANSFERASE INCREASED [None]
  - SOMNOLENCE [None]
  - LIVER INJURY [None]
